FAERS Safety Report 5962064-3 (Version None)
Quarter: 2008Q4

REPORT INFORMATION
  Report Type: 
  Country: None (occurrence: None)
  Receive Date: 20081121
  Receipt Date: 20081112
  Transmission Date: 20090506
  Serious: Yes (Other)
  Sender: FDA-Public Use
  Company Number: PHBS2008DE06325

PATIENT
  Age: 39 Year
  Sex: Male

DRUGS (3)
  1. PROLEUKIN [Suspect]
     Dosage: 3 X 6 MILLION IU/ WEEK
     Route: 058
  2. INTERFERON ALFA [Concomitant]
  3. CHEMOTHERAPEUTICS NOS [Concomitant]
     Indication: METASTASIS

REACTIONS (7)
  - ANAPHYLACTIC REACTION [None]
  - BLOOD PRESSURE DECREASED [None]
  - DIARRHOEA [None]
  - INFLUENZA LIKE ILLNESS [None]
  - NAUSEA [None]
  - SURGERY [None]
  - URTICARIA [None]
